FAERS Safety Report 20895910 (Version 1)
Quarter: 2022Q2

REPORT INFORMATION
  Report Type: Report from Study
  Country: CA (occurrence: CA)
  Receive Date: 20220531
  Receipt Date: 20220531
  Transmission Date: 20220720
  Serious: Yes (Other)
  Sender: FDA-Public Use
  Company Number: CA-NOVARTISPH-PHHY2018CA013370

PATIENT
  Age: 61 Year
  Sex: Female

DRUGS (6)
  1. COSENTYX [Suspect]
     Active Substance: SECUKINUMAB
     Indication: Psoriatic arthropathy
     Dosage: 300 MG, QW
     Route: 058
     Dates: start: 20180528
  2. COSENTYX [Suspect]
     Active Substance: SECUKINUMAB
     Dosage: 300 MG, QMO
     Route: 058
  3. COSENTYX [Suspect]
     Active Substance: SECUKINUMAB
     Dosage: 450 MG, QMO
     Route: 058
  4. METHOTREXATE [Concomitant]
     Active Substance: METHOTREXATE
     Indication: Product used for unknown indication
     Dosage: UNK
     Route: 065
     Dates: start: 201709
  5. PREDNISONE [Concomitant]
     Active Substance: PREDNISONE
     Indication: Product used for unknown indication
     Dosage: UNK UNK, PRN
     Route: 005
  6. SULFASALAZINE [Concomitant]
     Active Substance: SULFASALAZINE
     Indication: Product used for unknown indication
     Dosage: UNK
     Route: 065

REACTIONS (18)
  - Psoriatic arthropathy [Unknown]
  - Back pain [Unknown]
  - Joint swelling [Unknown]
  - Inflammation [Unknown]
  - Osteoarthritis [Not Recovered/Not Resolved]
  - Tenosynovitis [Unknown]
  - Nodal osteoarthritis [Unknown]
  - Blood pressure increased [Unknown]
  - Red cell distribution width increased [Unknown]
  - C-reactive protein increased [Unknown]
  - Psoriasis [Unknown]
  - Skin exfoliation [Unknown]
  - Pruritus [Unknown]
  - Dry skin [Unknown]
  - Skin weeping [Unknown]
  - Nail dystrophy [Unknown]
  - Product use issue [Unknown]
  - Drug ineffective [Unknown]

NARRATIVE: CASE EVENT DATE: 20180528
